FAERS Safety Report 23696669 (Version 1)
Quarter: 2024Q2

REPORT INFORMATION
  Report Type: Spontaneous
  Country: US (occurrence: US)
  Receive Date: 20240402
  Receipt Date: 20240402
  Transmission Date: 20240715
  Serious: Yes (Hospitalization, Other)
  Sender: FDA-Public Use
  Company Number: US-Accord-415942

PATIENT
  Age: 27 Year
  Sex: Female

DRUGS (1)
  1. METHOTREXATE [Suspect]
     Active Substance: METHOTREXATE
     Indication: Gestational trophoblastic tumour
     Dosage: 5-DAY REGIMEN 0.4 MG/KG/DAY EVERY 2 WEEKS/ ON CYCLE 1 DAY 4

REACTIONS (5)
  - Headache [Unknown]
  - Tremor [Unknown]
  - Dysphemia [Unknown]
  - Eye movement disorder [Unknown]
  - Off label use [Unknown]
